FAERS Safety Report 4691050-9 (Version None)
Quarter: 2005Q2

REPORT INFORMATION
  Report Type: 
  Country: None (occurrence: None)
  Receive Date: 20050615
  Receipt Date: 20050504
  Transmission Date: 20051028
  Serious: Yes (Other)
  Sender: FDA-Public Use
  Company Number: 2005UW06918

PATIENT
  Age: 54 Year
  Sex: Female
  Weight: 90.7 kg

DRUGS (8)
  1. SEROQUEL [Suspect]
     Indication: PANIC DISORDER
     Route: 048
  2. SEROQUEL [Suspect]
     Indication: SCHIZOPHRENIA
     Route: 048
  3. SEROQUEL [Suspect]
     Dosage: 50-75 MG
     Route: 048
  4. SEROQUEL [Suspect]
     Dosage: 50-75 MG
     Route: 048
  5. GLUCOPHAGE [Suspect]
     Indication: DIABETES MELLITUS
  6. SERAX [Concomitant]
     Route: 048
  7. PRILOSEC [Concomitant]
     Route: 048
  8. PAXIL [Concomitant]
     Route: 048

REACTIONS (5)
  - CARDIAC DISORDER [None]
  - DIABETES MELLITUS [None]
  - INCREASED APPETITE [None]
  - MUSCULOSKELETAL DISORDER [None]
  - WEIGHT INCREASED [None]
